FAERS Safety Report 23275818 (Version 1)
Quarter: 2023Q4

REPORT INFORMATION
  Report Type: Spontaneous
  Country: US (occurrence: None)
  Receive Date: 20231207
  Receipt Date: 20231207
  Transmission Date: 20240110
  Serious: Yes (Other)
  Sender: FDA-Public Use
  Company Number: None

PATIENT
  Sex: Female

DRUGS (5)
  1. BOTOX [Suspect]
     Active Substance: ONABOTULINUMTOXINA
     Indication: Migraine with aura
     Dosage: OTHER QUANTITY : 200 UNIT;?
     Dates: start: 20230308
  2. ADVAIR DISKU AER [Concomitant]
  3. ALBUTEROL AER HFA [Concomitant]
  4. SINGULAIR TAB [Concomitant]
  5. WIXELA INHUB AER [Concomitant]

REACTIONS (1)
  - Nasal operation [None]
